FAERS Safety Report 5988314-5 (Version None)
Quarter: 2008Q4

REPORT INFORMATION
  Report Type: 
  Country: None (occurrence: None)
  Receive Date: 20081210
  Receipt Date: 20081208
  Transmission Date: 20090506
  Serious: Yes (Hospitalization)
  Sender: FDA-Public Use
  Company Number: US-BIOGENIDEC-2008BI010664

PATIENT
  Age: 33 Year
  Sex: Female

DRUGS (2)
  1. AVONEX [Suspect]
     Indication: MULTIPLE SCLEROSIS
     Route: 030
     Dates: start: 20080417, end: 20080401
  2. AVONEX [Suspect]
     Route: 030
     Dates: start: 20000101, end: 20030101

REACTIONS (6)
  - BLOOD POTASSIUM DECREASED [None]
  - DEMENTIA [None]
  - HYPERSENSITIVITY [None]
  - RESPIRATORY ARREST [None]
  - SECONDARY PROGRESSIVE MULTIPLE SCLEROSIS [None]
  - URINARY TRACT INFECTION [None]
